FAERS Safety Report 5157619-2 (Version None)
Quarter: 2006Q4

REPORT INFORMATION
  Report Type: 
  Country: None (occurrence: None)
  Receive Date: 20061115
  Receipt Date: 20061110
  Transmission Date: 20070319
  Serious: Yes (Death, Other)
  Sender: FDA-Public Use
  Company Number: 163-21880-06100968

PATIENT
  Age: 87 Year
  Sex: Female

DRUGS (8)
  1. REVLIMID [Suspect]
     Indication: MYELODYSPLASTIC SYNDROME
     Dosage: 10 MG , 1 IN 1 D, ORAL
     Route: 048
     Dates: start: 20060911, end: 20061006
  2. ALLOPURINOL [Concomitant]
  3. LOTREL [Concomitant]
  4. LEXAPRO [Concomitant]
  5. FOLIC ACID [Concomitant]
  6. PREDNISONE TAB [Concomitant]
  7. PROTONIX [Concomitant]
  8. BETAPACE [Concomitant]

REACTIONS (5)
  - HAEMOGLOBIN DECREASED [None]
  - NEUTROPENIA [None]
  - PNEUMONIA [None]
  - THROMBOCYTOPENIA [None]
  - WHITE BLOOD CELL COUNT DECREASED [None]
